FAERS Safety Report 6160085-1 (Version None)
Quarter: 2009Q2

REPORT INFORMATION
  Report Type: 
  Country: None (occurrence: None)
  Receive Date: 20090420
  Receipt Date: 20090409
  Transmission Date: 20091009
  Serious: Yes (Other)
  Sender: FDA-Public Use
  Company Number: NL-ASTRAZENECA-2009AC01064

PATIENT
  Age: 775 Month
  Sex: Female

DRUGS (9)
  1. ATACAND [Suspect]
     Route: 048
  2. PRAVASTATINE NATRIUM [Suspect]
     Route: 048
  3. MAXIM EYES [Suspect]
     Route: 048
     Dates: start: 20080623
  4. ACTONEL [Suspect]
     Route: 048
     Dates: end: 20060601
  5. CARBASALAATCALCIUM [Suspect]
     Route: 048
  6. TEMAZEPAM [Suspect]
     Route: 048
  7. NASONEX [Suspect]
     Route: 045
     Dates: start: 20090112, end: 20090130
  8. NASONEX [Suspect]
     Route: 045
     Dates: start: 20090130
  9. SOLGAR VITAMIN B12 [Suspect]
     Route: 048

REACTIONS (2)
  - LACRIMATION INCREASED [None]
  - VISUAL ACUITY REDUCED [None]
